FAERS Safety Report 14874713 (Version 2)
Quarter: 2018Q2

REPORT INFORMATION
  Report Type: Spontaneous
  Country: SE (occurrence: SE)
  Receive Date: 20180510
  Receipt Date: 20180522
  Transmission Date: 20180711
  Serious: Yes (Other)
  Sender: FDA-Public Use
  Company Number: SE-PFIZER INC-2018187449

PATIENT
  Age: 65 Year
  Sex: Female

DRUGS (37)
  1. FUROSEMID [Concomitant]
     Active Substance: FUROSEMIDE
  2. CETIRIZINE [Concomitant]
     Active Substance: CETIRIZINE HYDROCHLORIDE
  3. EMLA [Concomitant]
     Active Substance: LIDOCAINE\PRILOCAINE
  4. ROCALTROL [Concomitant]
     Active Substance: CALCITRIOL
  5. FURIX [Concomitant]
     Active Substance: FUROSEMIDE
  6. MONOFER [Concomitant]
     Active Substance: IRON ISOMALTOSIDE 1000
  7. ZINC. [Concomitant]
     Active Substance: ZINC
  8. ARANESP [Concomitant]
     Active Substance: DARBEPOETIN ALFA
  9. DIMETIKON [Concomitant]
  10. OMEPRAZOL [Concomitant]
     Active Substance: OMEPRAZOLE
  11. EMGESAN [Concomitant]
  12. XYLOPROCT [Concomitant]
  13. SCHERIPROCT [Concomitant]
     Active Substance: DIBUCAINE HYDROCHLORIDE\PREDNISOLONE
  14. ALVEDON [Concomitant]
     Active Substance: ACETAMINOPHEN
  15. DALACIN [Suspect]
     Active Substance: CLINDAMYCIN
     Indication: SEPSIS
     Dosage: 8 ML (STRENGTH 150 MG/ML) DAILY
     Route: 042
     Dates: start: 20180313, end: 20180313
  16. MICROLAX [Concomitant]
  17. PRIMPERAN [Concomitant]
     Active Substance: METOCLOPRAMIDE HYDROCHLORIDE
  18. KETOGAN [Concomitant]
     Active Substance: KETOBEMIDONE HYDROCHLORIDE
  19. BEHEPAN [Concomitant]
     Active Substance: HYDROXOCOBALAMIN
  20. DETREMIN [Concomitant]
  21. DAKTACORT [Concomitant]
     Active Substance: HYDROCORTISONE\MICONAZOLE NITRATE
  22. NEBCINA [Suspect]
     Active Substance: TOBRAMYCIN SULFATE
     Indication: SEPSIS
     Dosage: 3 ML (STRENGTH 40 MG/ML)
     Route: 042
     Dates: start: 201803, end: 201803
  23. CALCIUM [Concomitant]
     Active Substance: CALCIUM
  24. FOLACIN [Concomitant]
     Active Substance: FOLIC ACID
  25. ARTELAC [Concomitant]
     Active Substance: HYPROMELLOSES
  26. VAGIFEM [Concomitant]
     Active Substance: ESTRADIOL
  27. OVESTERIN [Concomitant]
     Active Substance: ESTRIOL
  28. ONDANSETRON [Concomitant]
     Active Substance: ONDANSETRON
  29. OXYGEN. [Concomitant]
     Active Substance: OXYGEN
  30. ORALOVITE [Concomitant]
     Active Substance: ASCORBIC ACID\NIACINAMIDE\PYRIDOXINE\RIBOFLAVIN\THIAMINE
  31. MIDAZOLAM [Concomitant]
     Active Substance: MIDAZOLAM HYDROCHLORIDE
  32. NATRIUMBIKARBONAT [Concomitant]
  33. FLUORETTE [Concomitant]
  34. DENTAN MINT [Concomitant]
  35. LOPERAMID [Concomitant]
     Active Substance: LOPERAMIDE
  36. NORSPAN [Concomitant]
     Active Substance: BUPRENORPHINE
  37. CIPROFLOXACIN. [Concomitant]
     Active Substance: CIPROFLOXACIN

REACTIONS (1)
  - Stevens-Johnson syndrome [Unknown]

NARRATIVE: CASE EVENT DATE: 201803
